FAERS Safety Report 7792656-0 (Version None)
Quarter: 2011Q4

REPORT INFORMATION
  Report Type: 
  Country: None (occurrence: None)
  Receive Date: 20111003
  Receipt Date: 20110928
  Transmission Date: 20120403
  Serious: Yes (Life-Threatening)
  Sender: FDA-Public Use
  Company Number: CN-ASTRAZENECA-2011SE58226

PATIENT
  Sex: Female

DRUGS (4)
  1. PROPOFOL [Suspect]
     Indication: ANAESTHESIA
     Route: 042
  2. FENTANYL [Suspect]
     Indication: ANAESTHESIA
     Route: 042
  3. TRAMADOL HCL [Suspect]
     Indication: ANAESTHESIA
     Route: 042
  4. CHLORTENOXICAM [Suspect]
     Indication: ANAESTHESIA
     Route: 042

REACTIONS (6)
  - APNOEA [None]
  - OBSTRUCTIVE AIRWAYS DISORDER [None]
  - NAUSEA [None]
  - VOMITING [None]
  - DIZZINESS [None]
  - AGITATION [None]
